FAERS Safety Report 4305259-7 (Version None)
Quarter: 2004Q1

REPORT INFORMATION
  Report Type: 
  Country: None (occurrence: None)
  Receive Date: 20040226
  Receipt Date: 20040127
  Transmission Date: 20041129
  Serious: No
  Sender: FDA-Public Use
  Company Number: US-BRISTOL-MYERS SQUIBB COMPANY-12490348

PATIENT
  Age: 70 Year
  Sex: Male

DRUGS (1)
  1. DEFINITY [Suspect]
     Indication: CARDIAC STRESS TEST
     Dosage: MIXED WITH 18.7 CC OF NORMAL SALINE
     Route: 042

REACTIONS (3)
  - COUGH [None]
  - DYSPNOEA [None]
  - FEELING COLD [None]
